FAERS Safety Report 8018025-6 (Version None)
Quarter: 2012Q1

REPORT INFORMATION
  Report Type: 
  Country: None (occurrence: None)
  Receive Date: 20120103
  Receipt Date: 20111230
  Transmission Date: 20120608
  Serious: Yes (Death, Hospitalization)
  Sender: FDA-Public Use
  Company Number: FR-JNJFOC-20111210868

PATIENT
  Sex: Male

DRUGS (6)
  1. RISPERDAL [Suspect]
     Indication: HALLUCINATION
     Route: 048
     Dates: start: 20111101, end: 20111208
  2. MODOPAR [Suspect]
     Indication: PARKINSON'S DISEASE
     Route: 065
  3. MODOPAR [Suspect]
     Route: 065
     Dates: start: 20110901
  4. AMLODIPINE BESYLATE [Suspect]
     Indication: HYPERTENSION
     Dosage: IN THE EVENING INSTEAD OF THE MORNING SINCE SEPTEMBER
     Route: 048
     Dates: start: 20110901
  5. EXELON [Suspect]
     Indication: DEMENTIA
     Route: 062
  6. DIAMICRON [Suspect]
     Indication: TYPE 2 DIABETES MELLITUS
     Route: 048

REACTIONS (2)
  - GENERAL PHYSICAL HEALTH DETERIORATION [None]
  - HYPOTHERMIA [None]
